FAERS Safety Report 23866916 (Version 1)
Quarter: 2024Q2

REPORT INFORMATION
  Report Type: Spontaneous
  Country: NO (occurrence: NO)
  Receive Date: 20240517
  Receipt Date: 20240517
  Transmission Date: 20240715
  Serious: Yes (Hospitalization, Other)
  Sender: FDA-Public Use
  Company Number: NO-SA-2024SA148781

PATIENT
  Age: 74 Year
  Sex: Female

DRUGS (28)
  1. ALENDRONIC ACID [Interacting]
     Active Substance: ALENDRONIC ACID
     Indication: Osteoporosis
     Dosage: 70 MG, QW WEDNESDAY
     Route: 048
     Dates: start: 20220428, end: 20240428
  2. ESCITALOPRAM OXALATE [Interacting]
     Active Substance: ESCITALOPRAM OXALATE
     Indication: Depression
     Dosage: 20 MG, QD
     Route: 048
     Dates: start: 20141229
  3. PLAVIX [Interacting]
     Active Substance: CLOPIDOGREL BISULFATE
     Indication: Acute myocardial infarction
     Dosage: 75 MG, QD
     Route: 048
     Dates: start: 20161001
  4. ASPIRIN [Interacting]
     Active Substance: ASPIRIN
     Indication: Acute myocardial infarction
     Dosage: 75 MG, QD
     Route: 048
     Dates: start: 20220927, end: 20240426
  5. LAXABON [Concomitant]
     Dosage: UNK UNK, PRN (AS NEEDED)
  6. PANTOPRAZOLE SODIUM [Concomitant]
     Active Substance: PANTOPRAZOLE SODIUM
     Dosage: 40 MG, Q12H
  7. NOVORAPID [Concomitant]
     Active Substance: INSULIN ASPART
     Indication: Type 1 diabetes mellitus
     Dosage: UNK
  8. RAMIPRIL [Concomitant]
     Active Substance: RAMIPRIL
     Dosage: 2.5 MG, BID
  9. MOMETASONE FUROATE [Concomitant]
     Active Substance: MOMETASONE FUROATE
     Dosage: UNK UNK, PRN (AS NEEDED)
  10. TRESIBA [Concomitant]
     Active Substance: INSULIN DEGLUDEC
     Indication: Type 1 diabetes mellitus
     Dosage: UNK
  11. NYCOPLUS CALCIGRAN FORTE [Concomitant]
     Dosage: 2 DF, QD
  12. ATORVASTATIN [Concomitant]
     Active Substance: ATORVASTATIN
     Indication: Hypercholesterolaemia
     Dosage: 40 MG, QD
  13. OXYCONTIN [Concomitant]
     Active Substance: OXYCODONE HYDROCHLORIDE
     Dosage: 5 MG, Q12H
  14. LEVOTHYROXINE SODIUM [Concomitant]
     Active Substance: LEVOTHYROXINE SODIUM
     Indication: Hypothyroidism
     Dosage: 25 UG, BIW WEDNESDAY AND SATURDAY
  15. LEVOTHYROXINE SODIUM [Concomitant]
     Active Substance: LEVOTHYROXINE SODIUM
     Dosage: 75 UG, QD
  16. DUPHALAC [Concomitant]
     Active Substance: LACTULOSE
     Dosage: UNK UNK, PRN AS NEEDED
  17. ELOCON [Concomitant]
     Active Substance: MOMETASONE FUROATE
     Dosage: UNK UNK, PRN AS NEEDED
  18. BUDESONIDE\FORMOTEROL FUMARATE [Concomitant]
     Active Substance: BUDESONIDE\FORMOTEROL FUMARATE
     Indication: Asthma
     Dosage: UNK
  19. UREA [Concomitant]
     Active Substance: UREA
     Dosage: UNK UNK, PRN AS NEEDED
  20. ALBUTEROL SULFATE [Concomitant]
     Active Substance: ALBUTEROL SULFATE
     Dosage: UNK UNK, PRN AS NEEDED
  21. ACETAMINOPHEN [Concomitant]
     Active Substance: ACETAMINOPHEN
     Dosage: 1 G, Q12H AS NEEDED UPTO 2 TIMES DAILY
  22. ZOPICLONE [Concomitant]
     Active Substance: ZOPICLONE
     Dosage: 7.5 MG, QD
  23. NEURONTIN [Concomitant]
     Active Substance: GABAPENTIN
     Dosage: 300 MG, Q8H
  24. FEXOFENADINE [Concomitant]
     Active Substance: FEXOFENADINE HYDROCHLORIDE
     Dosage: UNK UNK, PRN AS NEEDED
  25. HIPREX [METHENAMINE HIPPURATE] [Concomitant]
     Dosage: 1 G, Q12H
     Dates: end: 20240426
  26. NITROGLYCERIN ORIFARM [Concomitant]
     Dosage: UNK UNK, PRN (AS NEEDED)
  27. EZETIMIBE [Concomitant]
     Active Substance: EZETIMIBE
     Indication: Hypercholesterolaemia
     Dosage: 10 MG, QD
  28. BAQSIMI [Concomitant]
     Active Substance: GLUCAGON
     Dosage: UNK UNK, PRN (AS NEEDED)

REACTIONS (2)
  - Blood loss anaemia [Recovering/Resolving]
  - Red blood cell transfusion [Recovering/Resolving]

NARRATIVE: CASE EVENT DATE: 20240426
